FAERS Safety Report 25687667 (Version 1)
Quarter: 2025Q3

REPORT INFORMATION
  Report Type: Spontaneous
  Country: US (occurrence: US)
  Receive Date: 20250817
  Receipt Date: 20250817
  Transmission Date: 20251021
  Serious: No
  Sender: IPSEN BIOPHARMACEUTICALS, INC.
  Company Number: US-IPSEN Group, Research and Development-2025-19844

PATIENT
  Sex: Female

DRUGS (1)
  1. ONIVYDE [Suspect]
     Active Substance: IRINOTECAN HYDROCHLORIDE
     Indication: Gastrointestinal neoplasm
     Dosage: DOSE: 100 MG / STRENGTH: 43 MG/10 ML, INFUSE
     Dates: start: 202506

REACTIONS (2)
  - Hypoacusis [Unknown]
  - Dysphonia [Unknown]
